FAERS Safety Report 12670838 (Version 2)
Quarter: 2017Q3

REPORT INFORMATION
  Report Type: Spontaneous
  Country: US (occurrence: US)
  Receive Date: 20160822
  Receipt Date: 20170706
  Transmission Date: 20171127
  Serious: No
  Sender: FDA-Public Use
  Company Number: US-JAZZ-2016-US-006252

PATIENT
  Sex: Female

DRUGS (23)
  1. PROVIGIL [Concomitant]
     Active Substance: MODAFINIL
  2. PROBIOTIC [Concomitant]
     Active Substance: PROBIOTICS NOS
  3. BUPROPION. [Concomitant]
     Active Substance: BUPROPION
  4. XYREM [Suspect]
     Active Substance: SODIUM OXYBATE
     Indication: NARCOLEPSY
     Dosage: 2.25G, BID
     Route: 048
     Dates: start: 201508, end: 201509
  5. AMOXICILLIN. [Concomitant]
     Active Substance: AMOXICILLIN
  6. ESCITALOPRAM [Concomitant]
     Active Substance: ESCITALOPRAM OXALATE
  7. MELOXICAM. [Concomitant]
     Active Substance: MELOXICAM
  8. SCHIFF MOVE FREE [Concomitant]
     Active Substance: CHONDROITIN SULFATE A\GLUCOSAMINE
  9. TOPAMAX [Concomitant]
     Active Substance: TOPIRAMATE
  10. ALKA-SELTZER [Concomitant]
     Active Substance: ANHYDROUS CITRIC ACID\ASPIRIN\SODIUM BICARBONATE
  11. XYREM [Suspect]
     Active Substance: SODIUM OXYBATE
     Dosage: 3G, BID
     Route: 048
     Dates: start: 201509, end: 201510
  12. XYREM [Suspect]
     Active Substance: SODIUM OXYBATE
     Dosage: 4.5G, BID
     Route: 048
     Dates: start: 201510
  13. DICYCLOMINE [Concomitant]
     Active Substance: DICYCLOMINE HYDROCHLORIDE
  14. SUMATRIPTAN. [Concomitant]
     Active Substance: SUMATRIPTAN
  15. OXYBUTYNIN [Concomitant]
     Active Substance: OXYBUTYNIN
  16. SYMBICORT [Concomitant]
     Active Substance: BUDESONIDE\FORMOTEROL FUMARATE DIHYDRATE
  17. VITAMIN D [Concomitant]
     Active Substance: CHOLECALCIFEROL
  18. OMEGA-3 ACIDS [Concomitant]
     Active Substance: OMEGA-3 FATTY ACIDS
  19. ALBUTEROL. [Concomitant]
     Active Substance: ALBUTEROL
  20. GINKGO [Concomitant]
     Active Substance: GINKGO
  21. SINGULAIR [Concomitant]
     Active Substance: MONTELUKAST SODIUM
  22. CALCIUM MAGNESIUM ZINC [Concomitant]
     Active Substance: CALCIUM\MAGNESIUM\ZINC
  23. FOCUS [Concomitant]

REACTIONS (2)
  - Wrong technique in product usage process [Unknown]
  - Retching [Recovered/Resolved]
